FAERS Safety Report 19453810 (Version 1)
Quarter: 2021Q2

REPORT INFORMATION
  Report Type: Spontaneous
  Country: US (occurrence: US)
  Receive Date: 20210623
  Receipt Date: 20210623
  Transmission Date: 20210717
  Serious: No
  Sender: FDA-Public Use
  Company Number: US-SA-2021SA198116

PATIENT
  Sex: Female

DRUGS (1)
  1. NASACORT ALLERGY 24HR [Suspect]
     Active Substance: TRIAMCINOLONE ACETONIDE
     Dosage: 55 ??G/DOSE

REACTIONS (4)
  - Therapeutic response decreased [Unknown]
  - Feeling abnormal [Unknown]
  - Nasal congestion [Unknown]
  - Initial insomnia [Unknown]

NARRATIVE: CASE EVENT DATE: 20210610
